FAERS Safety Report 10161657 (Version 1)
Quarter: 2014Q2

REPORT INFORMATION
  Report Type: Spontaneous
  Country: KR (occurrence: None)
  Receive Date: 20140507
  Receipt Date: 20140507
  Transmission Date: 20141212
  Serious: Yes (Hospitalization)
  Sender: FDA-Public Use
  Company Number: FK201401609

PATIENT
  Age: 76 Year
  Sex: Female

DRUGS (3)
  1. OXALIPLATIN (MANUFACTURER UNKNOWN) (OXALIPLATIN) (OXALIPLATIN) [Suspect]
     Indication: RECTOSIGMOID CANCER
  2. FLUOROURACIL [Suspect]
     Indication: RECTOSIGMOID CANCER
  3. LEUCOVORIN CALCIUM (MANUFACTURER UNKNOWN) (LEUCOVORIN CALCIUM) (LEUCOVORIN CALCIUM) [Suspect]
     Indication: RECTOSIGMOID CANCER

REACTIONS (3)
  - Sarcoidosis [None]
  - Pulmonary embolism [None]
  - Angiotensin converting enzyme increased [None]
